FAERS Safety Report 7290358-0 (Version None)
Quarter: 2011Q1

REPORT INFORMATION
  Report Type: 
  Country: None (occurrence: None)
  Receive Date: 20110214
  Receipt Date: 20110203
  Transmission Date: 20110831
  Serious: Yes (Hospitalization, Other)
  Sender: FDA-Public Use
  Company Number: FR-SANOFI-AVENTIS-2011SA007350

PATIENT
  Age: 85 Year
  Sex: Male

DRUGS (7)
  1. DIALGIREX [Concomitant]
     Route: 065
  2. MODOPAR [Concomitant]
     Route: 065
  3. TAHOR [Concomitant]
     Route: 065
  4. ART [Concomitant]
     Route: 065
  5. GLICLAZIDE [Concomitant]
     Route: 065
  6. LASIX [Suspect]
     Route: 048
     Dates: end: 20101218
  7. INDAPAMIDE [Suspect]
     Route: 048
     Dates: end: 20101218

REACTIONS (2)
  - HYPOKALAEMIA [None]
  - FALL [None]
